FAERS Safety Report 18502635 (Version 2)
Quarter: 2020Q4

REPORT INFORMATION
  Report Type: Report from Study
  Country: GB (occurrence: GB)
  Receive Date: 20201113
  Receipt Date: 20201120
  Transmission Date: 20210114
  Serious: Yes (Hospitalization)
  Sender: FDA-Public Use
  Company Number: GB-VERTEX PHARMACEUTICALS-2020-021978

PATIENT
  Age: 37 Year
  Sex: Male
  Weight: 74 kg

DRUGS (8)
  1. AVAMYS [Concomitant]
     Active Substance: FLUTICASONE FUROATE
     Indication: CYSTIC FIBROSIS LUNG
     Dosage: 55 MICROGRAM, QD
     Route: 045
     Dates: start: 20181207
  2. URSODEOXYCHOLIC ACID [Concomitant]
     Active Substance: URSODIOL
     Indication: PROPHYLAXIS
     Dosage: 450 MILLIGRAM, BID
     Route: 048
     Dates: start: 20090605
  3. DORNASE ALFA. [Concomitant]
     Active Substance: DORNASE ALFA
     Indication: CYSTIC FIBROSIS LUNG
     Dosage: 2.5 MILLIGRAM, QD
     Dates: start: 20090105
  4. FLUCLOXACILLIN [Concomitant]
     Active Substance: FLUCLOXACILLIN
     Indication: CYSTIC FIBROSIS LUNG
     Dosage: 1 GRAM, BID
     Route: 048
     Dates: start: 20090105
  5. IPRATROPIUM BROMIDE. [Concomitant]
     Active Substance: IPRATROPIUM BROMIDE
     Indication: CYSTIC FIBROSIS LUNG
     Dosage: 40 MICROGRAM, TID
     Dates: start: 20160507
  6. CREON [Concomitant]
     Active Substance: PANCRELIPASE AMYLASE\PANCRELIPASE LIPASE\PANCRELIPASE PROTEASE
     Indication: PANCREATIC FAILURE
     Dosage: 10000 UNITS, PRN
     Route: 048
     Dates: start: 20090105
  7. VX-445/VX-661/VX-770 [Suspect]
     Active Substance: ELEXACAFTOR\IVACAFTOR\TEZACAFTOR
     Indication: CYSTIC FIBROSIS
     Dosage: ELEX 200MG QD, TEZA 100MG QD/ IVA 150MG BID
     Route: 048
     Dates: start: 20200115
  8. MIRTAZAPIN [Concomitant]
     Active Substance: MIRTAZAPINE
     Indication: DEPRESSED MOOD
     Dosage: 15 MILLIGRAM, QD
     Route: 048
     Dates: start: 20190603

REACTIONS (1)
  - Infective pulmonary exacerbation of cystic fibrosis [Recovered/Resolved]

NARRATIVE: CASE EVENT DATE: 20201102
